FAERS Safety Report 6958671-1 (Version None)
Quarter: 2010Q3

REPORT INFORMATION
  Report Type: 
  Country: None (occurrence: None)
  Receive Date: 20100830
  Receipt Date: 20100830
  Transmission Date: 20110219
  Serious: No
  Sender: FDA-Public Use
  Company Number: None

PATIENT
  Age: 36 Year
  Sex: Female
  Weight: 68.0396 kg

DRUGS (1)
  1. CIPROFLOXACIN HCL [Suspect]
     Indication: URINARY TRACT INFECTION
     Dosage: 500 MG EVERY 12 HOURS PO
     Route: 048
     Dates: start: 20100713, end: 20100724

REACTIONS (3)
  - GAIT DISTURBANCE [None]
  - IMPAIRED WORK ABILITY [None]
  - TENDON PAIN [None]
